FAERS Safety Report 14079178 (Version 1)
Quarter: 2017Q4

REPORT INFORMATION
  Report Type: Spontaneous
  Country: US (occurrence: US)
  Receive Date: 20171012
  Receipt Date: 20171012
  Transmission Date: 20180321
  Serious: No
  Sender: FDA-Public Use
  Company Number: US-LEXICON PHARMACEUTICALS, INC-17-1606-00846

PATIENT
  Sex: Male

DRUGS (4)
  1. TELOTRISTAT ETHYL [Suspect]
     Active Substance: TELOTRISTAT ETHYL
     Indication: CARCINOID SYNDROME
     Route: 048
     Dates: start: 20170609
  2. IMODIUM [Concomitant]
     Active Substance: LOPERAMIDE HYDROCHLORIDE
     Indication: DIARRHOEA
  3. AFINITOR [Concomitant]
     Active Substance: EVEROLIMUS
     Route: 048
     Dates: start: 2017
  4. AFINITOR [Concomitant]
     Active Substance: EVEROLIMUS
     Route: 048
     Dates: end: 2017

REACTIONS (4)
  - Acne [Recovered/Resolved]
  - Diarrhoea [Recovered/Resolved]
  - Cheilitis [Recovered/Resolved]
  - Flatulence [Not Recovered/Not Resolved]

NARRATIVE: CASE EVENT DATE: 2017
